FAERS Safety Report 23196828 (Version 1)
Quarter: 2023Q4

REPORT INFORMATION
  Report Type: Spontaneous
  Country: US (occurrence: US)
  Receive Date: 20231117
  Receipt Date: 20231117
  Transmission Date: 20240110
  Serious: Yes (Other)
  Sender: FDA-Public Use
  Company Number: US-PFIZER INC-202300361889

PATIENT
  Age: 42 Year
  Sex: Female
  Weight: 62.6 kg

DRUGS (1)
  1. ESTRADIOL [Suspect]
     Active Substance: ESTRADIOL
     Dosage: UNK

REACTIONS (11)
  - Hysterectomy [Unknown]
  - Hot flush [Unknown]
  - Weight increased [Unknown]
  - Laryngitis [Unknown]
  - Nervous system disorder [Unknown]
  - Pain [Unknown]
  - Loss of personal independence in daily activities [Unknown]
  - Intervertebral disc degeneration [Unknown]
  - Musculoskeletal disorder [Unknown]
  - Back disorder [Unknown]
  - Hepatic steatosis [Unknown]

NARRATIVE: CASE EVENT DATE: 20160301
